FAERS Safety Report 24982145 (Version 1)
Quarter: 2025Q1

REPORT INFORMATION
  Report Type: Spontaneous
  Country: US (occurrence: None)
  Receive Date: 20250216
  Receipt Date: 20250216
  Transmission Date: 20250408
  Serious: Yes (Life-Threatening, Disabling, Other)
  Sender: FDA-CTU
  Company Number: None

PATIENT
  Age: 33 Year
  Sex: Female
  Weight: 67.5 kg

DRUGS (1)
  1. MONTELUKAST SODIUM [Suspect]
     Active Substance: MONTELUKAST SODIUM
     Indication: Hypersensitivity
     Route: 048
     Dates: start: 20250120, end: 20250121

REACTIONS (7)
  - Neuropsychological symptoms [None]
  - Suicidal ideation [None]
  - Depression [None]
  - Crying [None]
  - Agitation [None]
  - Screaming [None]
  - Mania [None]

NARRATIVE: CASE EVENT DATE: 20250120
